FAERS Safety Report 7561287-X (Version None)
Quarter: 2011Q2

REPORT INFORMATION
  Report Type: 
  Country: None (occurrence: None)
  Receive Date: 20110621
  Receipt Date: 20101222
  Transmission Date: 20111010
  Serious: No
  Sender: FDA-Public Use
  Company Number: US-ASTRAZENECA-2010SE60384

PATIENT
  Age: 11 Year
  Sex: Female
  Weight: 27.7 kg

DRUGS (4)
  1. PULMICORT FLEXHALER [Suspect]
     Route: 055
     Dates: start: 20101201
  2. PULMICORT FLEXHALER [Suspect]
     Dosage: TWO PUFFS IN PM
     Route: 055
     Dates: start: 20101201
  3. PULMICORT FLEXHALER [Suspect]
     Indication: ASTHMA
     Dosage: TWO PUFFS IN AM
     Route: 055
     Dates: start: 20101201
  4. AUGMENTIN '125' [Concomitant]

REACTIONS (7)
  - NASOPHARYNGITIS [None]
  - PSYCHOMOTOR HYPERACTIVITY [None]
  - FEELING ABNORMAL [None]
  - WHEEZING [None]
  - WRONG TECHNIQUE IN DRUG USAGE PROCESS [None]
  - COUGH [None]
  - DRUG DOSE OMISSION [None]
